FAERS Safety Report 16962065 (Version 1)
Quarter: 2019Q4

REPORT INFORMATION
  Report Type: Report from Study
  Country: US (occurrence: US)
  Receive Date: 20191025
  Receipt Date: 20191025
  Transmission Date: 20200122
  Serious: Yes (Death, Hospitalization, Other)
  Sender: FDA-Public Use
  Company Number: US-SHIRE-US201902111AA

PATIENT
  Age: 63 Year
  Sex: Male

DRUGS (2)
  1. CINRYZE [Suspect]
     Active Substance: HUMAN C1-ESTERASE INHIBITOR
     Indication: IMMUNE SYSTEM DISORDER
     Dosage: 3000 INTERNATIONAL UNIT, 2X A WEEK
     Route: 042
     Dates: start: 20100413, end: 20190209
  2. FIRAZYR [Suspect]
     Active Substance: ICATIBANT ACETATE
     Indication: IMMUNE SYSTEM DISORDER
     Dosage: 3000 INTERNATIONAL UNIT, 2X A WEEK
     Route: 042
     Dates: start: 20100413, end: 20190209

REACTIONS (3)
  - Off label use [Unknown]
  - Death [Fatal]
  - Gout [Not Recovered/Not Resolved]

NARRATIVE: CASE EVENT DATE: 201901
